FAERS Safety Report 4499030-3 (Version None)
Quarter: 2004Q4

REPORT INFORMATION
  Report Type: 
  Country: None (occurrence: None)
  Receive Date: 20040927
  Receipt Date: 20040601
  Transmission Date: 20050328
  Serious: No
  Sender: FDA-Public Use
  Company Number: USA040668943

PATIENT
  Age: 18 Year
  Sex: Male
  Weight: 73 kg

DRUGS (2)
  1. STRATTERA [Suspect]
     Indication: ATTENTION DEFICIT/HYPERACTIVITY DISORDER
     Dosage: 100 MG
     Dates: start: 20030101
  2. GUANFACINE HCL [Concomitant]

REACTIONS (4)
  - ABNORMAL BEHAVIOUR [None]
  - DRUG EFFECT DECREASED [None]
  - HYPERPHAGIA [None]
  - WEIGHT INCREASED [None]
